FAERS Safety Report 8336149 (Version 4)
Quarter: 2013Q3

REPORT INFORMATION
  Report Type: Spontaneous
  Country: US (occurrence: US)
  Receive Date: 20120113
  Receipt Date: 20130827
  Transmission Date: 20140515
  Serious: Yes (Other)
  Sender: FDA-Public Use
  Company Number: US-ROCHE-1029805

PATIENT
  Sex: Female
  Weight: 56.75 kg

DRUGS (2)
  1. ACCUTANE [Suspect]
     Indication: ACNE
     Dosage: STARTED IN MID 1980^S
     Route: 065
  2. ACCUTANE [Suspect]
     Route: 065
     Dates: start: 1989

REACTIONS (3)
  - Colitis microscopic [Unknown]
  - Injury [Unknown]
  - Depression [Unknown]
